FAERS Safety Report 5268501-4 (Version None)
Quarter: 2007Q1

REPORT INFORMATION
  Report Type: 
  Country: None (occurrence: None)
  Receive Date: 20061213
  Receipt Date: 20040803
  Transmission Date: 20070707
  Serious: Yes (Other)
  Sender: FDA-Public Use
  Company Number: 2004UW16392

PATIENT
  Age: 67 Year
  Sex: Male

DRUGS (1)
  1. IRESSA [Suspect]

REACTIONS (4)
  - BLINDNESS [None]
  - CONSTIPATION [None]
  - DIARRHOEA [None]
  - NAUSEA [None]
